FAERS Safety Report 7692477-3 (Version None)
Quarter: 2011Q3

REPORT INFORMATION
  Report Type: 
  Country: None (occurrence: None)
  Receive Date: 20110818
  Receipt Date: 20110307
  Transmission Date: 20111222
  Serious: No
  Sender: FDA-Public Use
  Company Number: US-PFIZER INC-2010165335

PATIENT
  Sex: Female
  Weight: 51 kg

DRUGS (4)
  1. LATANOPROST [Suspect]
     Dosage: UNK
  2. MAXZIDE [Concomitant]
     Indication: HYPERTENSION
     Dosage: UNK
  3. XALATAN [Suspect]
     Indication: GLAUCOMA
     Dosage: 1 GTT, 1X/DAY, AT BEDTIME
     Route: 047
     Dates: start: 20100826, end: 20110302
  4. LIPITOR [Concomitant]
     Indication: BLOOD CHOLESTEROL INCREASED
     Dosage: 20 MG, 1X/DAY
     Route: 048

REACTIONS (4)
  - EXPIRED DRUG ADMINISTERED [None]
  - FOREIGN BODY IN EYE [None]
  - EYE PAIN [None]
  - MUSCLE TWITCHING [None]
